FAERS Safety Report 5957603-2 (Version None)
Quarter: 2008Q4

REPORT INFORMATION
  Report Type: 
  Country: None (occurrence: None)
  Receive Date: 20081117
  Receipt Date: 20081117
  Transmission Date: 20090506
  Serious: Yes (Life-Threatening)
  Sender: FDA-Public Use
  Company Number: None

PATIENT
  Age: 23 Year
  Sex: Female
  Weight: 74.8435 kg

DRUGS (2)
  1. CYMBALTA [Suspect]
     Indication: BACK PAIN
     Dates: start: 20070601, end: 20070704
  2. CYMBALTA [Suspect]
     Indication: FIBROMYALGIA
     Dates: start: 20070601, end: 20070704

REACTIONS (1)
  - SUICIDE ATTEMPT [None]
